FAERS Safety Report 6064937-2 (Version None)
Quarter: 2009Q1

REPORT INFORMATION
  Report Type: 
  Country: None (occurrence: None)
  Receive Date: 20090204
  Receipt Date: 20090120
  Transmission Date: 20090719
  Serious: Yes (Hospitalization)
  Sender: FDA-Public Use
  Company Number: US-MERCK-0902USA00037

PATIENT
  Age: 56 Year
  Sex: Male

DRUGS (1)
  1. HYZAAR [Suspect]
     Route: 048

REACTIONS (4)
  - CHEST DISCOMFORT [None]
  - CORONARY ARTERY DISEASE [None]
  - LOSS OF CONSCIOUSNESS [None]
  - SYNCOPE [None]
